FAERS Safety Report 12526651 (Version 1)
Quarter: 2016Q3

REPORT INFORMATION
  Report Type: Spontaneous
  Country: US (occurrence: None)
  Receive Date: 20160701
  Receipt Date: 20160701
  Transmission Date: 20161109
  Serious: No
  Sender: FDA-Public Use
  Company Number: None

PATIENT
  Age: 59 Year
  Sex: Male

DRUGS (1)
  1. AFINITOR [Suspect]
     Active Substance: EVEROLIMUS
     Dosage: 5MG (7 TAB CARD) 1 DAILY PO
     Route: 048
     Dates: start: 2014

REACTIONS (1)
  - Fatigue [None]

NARRATIVE: CASE EVENT DATE: 201606
